FAERS Safety Report 8673919 (Version 3)
Quarter: 2012Q4

REPORT INFORMATION
  Report Type: 
  Country: US (occurrence: US)
  Receive Date: 20120719
  Receipt Date: 20121220
  Transmission Date: 20130627
  Serious: Yes (Other)
  Sender: FDA-Public Use
  Company Number: US-ELI_LILLY_AND_COMPANY-US201206008205

PATIENT
  Age: 74 None
  Sex: Female
  Weight: 91.61 kg

DRUGS (12)
  1. FORTEO [Suspect]
     Indication: OSTEOPOROSIS
     Dosage: 20 ug, qd
     Route: 058
     Dates: start: 20120613
  2. FORTEO [Suspect]
     Dosage: 20 ug, qd
     Dates: end: 201211
  3. COUMADIN [Concomitant]
     Indication: THROMBOSIS
  4. LASIX [Concomitant]
     Indication: DIURETIC THERAPY
     Dosage: UNK
  5. CARTIA XT [Concomitant]
     Dosage: UNK
  6. LISINOPRIL [Concomitant]
     Indication: HYPERTENSION
     Dosage: UNK
  7. LEXAPRO [Concomitant]
     Indication: ANTIDEPRESSANT THERAPY
     Dosage: UNK
  8. ALPRAZOLAM [Concomitant]
     Indication: ANTIDEPRESSANT THERAPY
     Dosage: UNK
  9. ADDERALL [Concomitant]
     Dosage: UNK
  10. OMEPRAZOLE [Concomitant]
     Dosage: UNK
  11. VITAMIN D [Concomitant]
     Dosage: UNK
  12. ZOLPIDEM [Concomitant]
     Dosage: UNK

REACTIONS (23)
  - Loss of consciousness [Recovered/Resolved]
  - Loss of consciousness [Recovered/Resolved]
  - Arthritis [Recovering/Resolving]
  - Thoracic vertebral fracture [Unknown]
  - Paraesthesia [Recovering/Resolving]
  - Musculoskeletal stiffness [Recovering/Resolving]
  - Oedema peripheral [Recovered/Resolved]
  - Abdominal discomfort [Recovered/Resolved]
  - Fall [Recovered/Resolved]
  - Limb discomfort [Unknown]
  - Pain in extremity [Recovering/Resolving]
  - Head injury [Unknown]
  - Contusion [Unknown]
  - Blood pressure increased [Unknown]
  - Insomnia [Unknown]
  - Headache [Unknown]
  - Vomiting [Recovered/Resolved]
  - Pain [Unknown]
  - Fall [Unknown]
  - Dizziness [Unknown]
  - Cataplexy [Unknown]
  - Sciatica [Not Recovered/Not Resolved]
  - Mobility decreased [Unknown]
